FAERS Safety Report 7297167-7 (Version None)
Quarter: 2011Q1

REPORT INFORMATION
  Report Type: 
  Country: None (occurrence: None)
  Receive Date: 20110216
  Receipt Date: 20110214
  Transmission Date: 20110831
  Serious: No
  Sender: FDA-Public Use
  Company Number: US-PFIZER INC-2011032901

PATIENT
  Sex: Female
  Weight: 81.633 kg

DRUGS (2)
  1. ADVIL [Suspect]
     Indication: MIGRAINE
     Dosage: UNK
     Route: 048
  2. LOSARTAN POTASSIUM [Concomitant]
     Indication: HYPERTENSION
     Dosage: 100 MG, 1X/DAY

REACTIONS (1)
  - DERMATITIS ALLERGIC [None]
